FAERS Safety Report 5868634-5 (Version None)
Quarter: 2008Q3

REPORT INFORMATION
  Report Type: 
  Country: None (occurrence: None)
  Receive Date: 20080903
  Receipt Date: 20080826
  Transmission Date: 20090109
  Serious: Yes (Congenital Anomaly)
  Sender: FDA-Public Use
  Company Number: GB-TEVA-176443ISR

PATIENT
  Sex: Female
  Weight: 3.85 kg

DRUGS (2)
  1. LAMOTRIGINE [Suspect]
     Indication: CONVULSION
     Route: 064
  2. TOPIRAMATE [Suspect]
     Indication: CONVULSION
     Route: 064

REACTIONS (2)
  - CYST [None]
  - MATERNAL DRUGS AFFECTING FOETUS [None]
